FAERS Safety Report 6959063-1 (Version None)
Quarter: 2010Q3

REPORT INFORMATION
  Report Type: 
  Country: None (occurrence: None)
  Receive Date: 20100831
  Receipt Date: 20100823
  Transmission Date: 20110219
  Serious: Yes (Hospitalization)
  Sender: FDA-Public Use
  Company Number: CHPA2010US13065

PATIENT
  Age: 77 Year
  Sex: Female

DRUGS (5)
  1. BENEFIBER PLUS CALCIUM WITH WHEAT DEXTRIN(NCH) [Suspect]
     Indication: FLATULENCE
     Dosage: 1 DF, ONCE OR TWICE A DAY
     Route: 048
     Dates: start: 20100801
  2. BENEFIBER PLUS CALCIUM WITH WHEAT DEXTRIN(NCH) [Suspect]
     Indication: CONSTIPATION
  3. BENEFIBER PLUS CALCIUM WITH WHEAT DEXTRIN(NCH) [Suspect]
     Indication: BOWEL MOVEMENT IRREGULARITY
  4. ^HEART/BLOOD PRESSURE PILL^ [Suspect]
     Indication: CARDIAC DISORDER
  5. ^HEART/BLOOD PRESSURE PILL^ [Suspect]
     Indication: BLOOD PRESSURE

REACTIONS (5)
  - HEART INJURY [None]
  - LIP SWELLING [None]
  - OFF LABEL USE [None]
  - SWELLING [None]
  - SWELLING FACE [None]
